FAERS Safety Report 6717325-7 (Version None)
Quarter: 2010Q2

REPORT INFORMATION
  Report Type: 
  Country: None (occurrence: None)
  Receive Date: 20100505
  Receipt Date: 20100426
  Transmission Date: 20101027
  Serious: No
  Sender: FDA-Public Use
  Company Number: SPI200900307

PATIENT
  Age: 26 Year
  Sex: Female
  Weight: 59 kg

DRUGS (3)
  1. AMITIZA [Suspect]
     Indication: CONSTIPATION
     Dosage: QD, ORAL
     Route: 048
     Dates: start: 20080918, end: 20090818
  2. AMITIZA [Suspect]
     Indication: CONSTIPATION
     Dosage: QD, ORAL
     Route: 048
     Dates: start: 20100101, end: 20100101
  3. PRENATAL VITAMINS (ASCORBIC ACID, BIOTIN, MINERALS NOS, NICOLTINIC ACI [Concomitant]

REACTIONS (4)
  - CONDITION AGGRAVATED [None]
  - CONSTIPATION [None]
  - DRUG EXPOSURE DURING PREGNANCY [None]
  - PREGNANCY [None]
